FAERS Safety Report 25564727 (Version 1)
Quarter: 2025Q3

REPORT INFORMATION
  Report Type: Report from Study
  Country: CO (occurrence: CO)
  Receive Date: 20250716
  Receipt Date: 20250716
  Transmission Date: 20251021
  Serious: Yes (Death, Hospitalization)
  Sender: ASTELLAS
  Company Number: CO-PFIZER INC-PV202500061795

PATIENT
  Age: 77 Year
  Sex: Female

DRUGS (1)
  1. ENFORTUMAB VEDOTIN-EJFV [Suspect]
     Active Substance: ENFORTUMAB VEDOTIN-EJFV
     Indication: Bladder transitional cell carcinoma stage I
     Route: 042
     Dates: start: 20250516

REACTIONS (4)
  - Bladder transitional cell carcinoma stage I [Fatal]
  - Malignant neoplasm progression [Fatal]
  - Urinary tract infection [Not Recovered/Not Resolved]
  - Catheter site infection [Not Recovered/Not Resolved]

NARRATIVE: CASE EVENT DATE: 20250519
